FAERS Safety Report 6959304-0 (Version None)
Quarter: 2010Q3

REPORT INFORMATION
  Report Type: 
  Country: None (occurrence: None)
  Receive Date: 20100831
  Receipt Date: 20100726
  Transmission Date: 20110219
  Serious: No
  Sender: FDA-Public Use
  Company Number: US-PFIZER INC-2010094168

PATIENT
  Sex: Male
  Weight: 74 kg

DRUGS (11)
  1. SUTENT [Suspect]
     Indication: RENAL CELL CARCINOMA
     Dosage: 12.5 MG, 1X/DAY
     Route: 048
     Dates: start: 20100201
  2. SUTENT [Suspect]
     Dosage: 12.5 MG, 2X/DAY
     Route: 048
     Dates: start: 20100201
  3. SUTENT [Suspect]
     Dosage: 12.5 MG, 3X/DAY
     Route: 048
     Dates: start: 20100201
  4. SUTENT [Suspect]
     Dosage: 12.5 MG, 4X/DAY
     Route: 048
     Dates: start: 20100224, end: 20100401
  5. SUTENT [Suspect]
     Dosage: 12.5 MG, 3X/DAY
     Dates: start: 20100517, end: 20100625
  6. RANITIDINE [Concomitant]
     Indication: ABDOMINAL DISCOMFORT
     Dosage: UNK
  7. POTASSIUM [Concomitant]
     Indication: IRON DEFICIENCY
     Dosage: 10 MEQ, UNK
  8. COLCHICINE [Concomitant]
     Indication: GOUT
     Dosage: UNK
  9. ALLOPURINOL [Concomitant]
     Indication: GOUT
     Dosage: UNK
  10. COZAAR [Concomitant]
     Indication: HYPERTENSION
     Dosage: UNK
  11. LOSARTAN [Concomitant]
     Indication: HYPERTENSION
     Dosage: UNK

REACTIONS (7)
  - ANAEMIA [None]
  - ASTHENIA [None]
  - DISEASE PROGRESSION [None]
  - FATIGUE [None]
  - PRURITUS [None]
  - RENAL CELL CARCINOMA [None]
  - WEIGHT DECREASED [None]
